FAERS Safety Report 7536884-8 (Version None)
Quarter: 2011Q2

REPORT INFORMATION
  Report Type: 
  Country: None (occurrence: None)
  Receive Date: 20110609
  Receipt Date: 20110530
  Transmission Date: 20111010
  Serious: Yes (Other)
  Sender: FDA-Public Use
  Company Number: DE-ROCHE-780123

PATIENT
  Age: 19 Year
  Sex: Male

DRUGS (4)
  1. DEXAMETHASONE [Concomitant]
  2. BEVACIZUMAB [Suspect]
     Indication: RADIATION NECROSIS
     Dosage: FREQUENCY: FOR 3 MONTHS
     Route: 065
  3. DEXAMETHASONE [Concomitant]
     Dosage: DISCONTINUED
  4. DEXAMETHASONE [Concomitant]
     Dosage: TAPARED

REACTIONS (3)
  - IMPAIRED HEALING [None]
  - CONVULSION [None]
  - PNEUMONIA [None]
